FAERS Safety Report 21571803 (Version 1)
Quarter: 2022Q4

REPORT INFORMATION
  Report Type: Spontaneous
  Country: DE (occurrence: DE)
  Receive Date: 20221109
  Receipt Date: 20221109
  Transmission Date: 20230113
  Serious: Yes (Hospitalization)
  Sender: FDA-Public Use
  Company Number: DE-MYLANLABS-2022M1123225

PATIENT
  Age: 54 Year
  Sex: Male

DRUGS (7)
  1. FLUOROURACIL [Suspect]
     Active Substance: FLUOROURACIL
     Indication: Anal cancer
     Dosage: 800 MILLIGRAM/SQ. METER, QD (ON DAYS 1-5 (WEEK 1) AND ..)
     Route: 042
  2. CAPECITABINE [Suspect]
     Active Substance: CAPECITABINE
     Indication: Anal cancer metastatic
     Dosage: 2500 MILLIGRAM/SQ. METER, Q3W (D1-14)
     Route: 065
     Dates: start: 201703
  3. MITOMYCIN [Suspect]
     Active Substance: MITOMYCIN
     Indication: Anal cancer
     Dosage: 10 MILLIGRAM/SQ. METER (ON DAY 1 (WEEK 1) AND..)
     Route: 042
  4. CISPLATIN [Suspect]
     Active Substance: CISPLATIN
     Indication: Anal cancer metastatic
     Dosage: 60 MILLIGRAM/SQ. METER, Q3W (D1)
     Route: 065
     Dates: start: 201703
  5. DOCETAXEL [Suspect]
     Active Substance: DOCETAXEL
     Indication: Anal cancer metastatic
     Dosage: 75 MILLIGRAM/SQ. METER (D1)
     Route: 065
  6. DOLUTEGRAVIR [Concomitant]
     Active Substance: DOLUTEGRAVIR
     Indication: HIV infection
     Dosage: UNK
     Route: 065
  7. EMTRICITABINE\TENOFOVIR [Concomitant]
     Active Substance: EMTRICITABINE\TENOFOVIR
     Indication: HIV infection
     Route: 065

REACTIONS (1)
  - Drug ineffective [Unknown]
